FAERS Safety Report 7262249-2 (Version None)
Quarter: 2011Q1

REPORT INFORMATION
  Report Type: 
  Country: None (occurrence: None)
  Receive Date: 20110130
  Receipt Date: 20101124
  Transmission Date: 20110831
  Serious: No
  Sender: FDA-Public Use
  Company Number: US-ABBOTT-10P-163-0687725-00

PATIENT
  Age: 52 Year
  Sex: Female

DRUGS (7)
  1. MOBIC [Concomitant]
     Indication: PRODUCT USED FOR UNKNOWN INDICATION
  2. CALCIUM [Concomitant]
     Indication: PRODUCT USED FOR UNKNOWN INDICATION
  3. HUMIRA [Suspect]
     Indication: RHEUMATOID ARTHRITIS
     Dates: start: 20100901
  4. FOLIC ACID [Concomitant]
     Indication: PRODUCT USED FOR UNKNOWN INDICATION
  5. METHOTREXATE [Concomitant]
     Indication: PRODUCT USED FOR UNKNOWN INDICATION
  6. ALPHAGAN [Concomitant]
     Indication: PRODUCT USED FOR UNKNOWN INDICATION
     Dosage: DROPS FOR BOTH EYES DAILY
  7. TRAZATAN-Z EYE DROPS [Concomitant]
     Indication: PRODUCT USED FOR UNKNOWN INDICATION
     Dosage: DROPS FOR EACH EYE DAILY

REACTIONS (3)
  - INJECTION SITE ERYTHEMA [None]
  - INJECTION SITE INDURATION [None]
  - INJECTION SITE RASH [None]
